FAERS Safety Report 10486647 (Version 1)
Quarter: 2014Q4

REPORT INFORMATION
  Report Type: Report from Study
  Country: CA (occurrence: CA)
  Receive Date: 20141001
  Receipt Date: 20141001
  Transmission Date: 20150528
  Serious: Yes (Other)
  Sender: FDA-Public Use
  Company Number: CA-JNJFOC-20140924575

PATIENT
  Age: 38 Year
  Sex: Male
  Weight: 57 kg

DRUGS (1)
  1. REMICADE [Suspect]
     Active Substance: INFLIXIMAB
     Indication: CROHN^S DISEASE
     Dosage: LOADING DOSE WEEKS OF 0,2,6 AND EVERY 8 WEEKS.
     Route: 042
     Dates: start: 20140522

REACTIONS (2)
  - Diverticulitis [Unknown]
  - Fistula [Unknown]

NARRATIVE: CASE EVENT DATE: 20140813
